FAERS Safety Report 9966335 (Version 1)
Quarter: 2014Q1

REPORT INFORMATION
  Report Type: Report from Study
  Country: US (occurrence: US)
  Receive Date: 20140305
  Receipt Date: 20140305
  Transmission Date: 20141002
  Serious: No
  Sender: FDA-Public Use
  Company Number: US-ABBVIE-13P-163-1122522-00

PATIENT
  Age: 31 Year
  Sex: Female

DRUGS (5)
  1. HUMIRA [Suspect]
     Indication: CROHN^S DISEASE
     Dates: start: 20130521
  2. PENTASA [Concomitant]
     Indication: PRODUCT USED FOR UNKNOWN INDICATION
  3. BUDESONIDE [Concomitant]
     Indication: CROHN^S DISEASE
     Dosage: IN THE MORNING
  4. DEPO PROVERA [Concomitant]
     Indication: CONTRACEPTION
  5. ALBUTEROL [Concomitant]
     Indication: ASTHMA
     Dosage: 1 OR 2 PUFFS

REACTIONS (2)
  - Inappropriate schedule of drug administration [Recovered/Resolved]
  - Abdominal pain [Recovered/Resolved]
